FAERS Safety Report 7461463-0 (Version None)
Quarter: 2011Q2

REPORT INFORMATION
  Report Type: 
  Country: None (occurrence: None)
  Receive Date: 20110506
  Receipt Date: 20110503
  Transmission Date: 20111010
  Serious: No
  Sender: FDA-Public Use
  Company Number: US-PFIZER INC-2011094469

PATIENT
  Sex: Female
  Weight: 90.7 kg

DRUGS (2)
  1. PRISTIQ [Suspect]
     Indication: ANXIETY
     Dosage: 50 MG, 1X/DAY
     Route: 048
     Dates: start: 20110401, end: 20110430
  2. PRISTIQ [Suspect]
     Indication: DEPRESSION

REACTIONS (1)
  - BLOOD PRESSURE INCREASED [None]
